FAERS Safety Report 8644199 (Version 4)
Quarter: 2012Q4

REPORT INFORMATION
  Report Type: 
  Country: US (occurrence: US)
  Receive Date: 20120629
  Receipt Date: 20120913
  Transmission Date: 20130627
  Serious: Yes (Other)
  Sender: FDA-Public Use
  Company Number: US-PFIZER INC-2012155288

PATIENT
  Age: 64 Year
  Sex: Female
  Weight: 72 kg

DRUGS (9)
  1. LYRICA [Suspect]
     Indication: FIBROMYALGIA
     Dosage: 75 mg, 2x/day
     Route: 048
     Dates: start: 20120625
  2. CITALOPRAM [Concomitant]
     Indication: DEPRESSION
     Dosage: 10 mg, 1x/day
     Dates: start: 20120625
  3. LEVOTHYROXINE [Concomitant]
     Indication: HYPOTHYROIDISM
     Dosage: 75 ug, UNK
  4. TOPIRAMATE [Concomitant]
     Indication: MIGRAINE
     Dosage: 50 mg, 2x/day
  5. ISOSORBIDE [Concomitant]
     Indication: CARDIAC DISORDER
     Dosage: 30 mg, 2x/day
  6. LORAZEPAM [Concomitant]
     Indication: SLEEP DISORDER
     Dosage: 1 mg, 2x/day
  7. PLAVIX [Concomitant]
     Dosage: 75 mg, 1x/day
  8. MEDROXYPROGESTERONE [Concomitant]
     Indication: CONTRACEPTION
     Dosage: 10 mg, 1x/day
  9. ASPIRIN [Concomitant]
     Dosage: 325 mg, UNK

REACTIONS (4)
  - Suicidal ideation [Unknown]
  - Fatigue [Not Recovered/Not Resolved]
  - Pain [Unknown]
  - Migraine [Unknown]
